FAERS Safety Report 8040750-1 (Version None)
Quarter: 2012Q1

REPORT INFORMATION
  Report Type: 
  Country: None (occurrence: None)
  Receive Date: 20120111
  Receipt Date: 20111229
  Transmission Date: 20120608
  Serious: No
  Sender: FDA-Public Use
  Company Number: US-AMGEN-USASP2011069346

PATIENT
  Age: 57 Year
  Sex: Female

DRUGS (7)
  1. CYMBALTA [Concomitant]
     Dosage: 20 UNK, UNK
  2. METFORMIN HCL [Concomitant]
     Dosage: 500 MG, UNK
  3. ENBREL [Suspect]
     Indication: PRODUCT USED FOR UNKNOWN INDICATION
     Dosage: 50 MG, QWK
     Route: 058
  4. CALCIUM +D                         /00188401/ [Concomitant]
     Dosage: UNK
  5. LISINOPRIL [Concomitant]
     Dosage: 5 MG, UNK
  6. OMEPRAZOLE [Concomitant]
     Dosage: 10 MG, UNK
  7. PREDNISONE TAB [Concomitant]
     Dosage: 1 MG, UNK

REACTIONS (1)
  - HERPES ZOSTER [None]
